FAERS Safety Report 14403170 (Version 2)
Quarter: 2018Q1

REPORT INFORMATION
  Report Type: Report from Study
  Country: US (occurrence: US)
  Receive Date: 20180117
  Receipt Date: 20180119
  Transmission Date: 20180509
  Serious: Yes (Life-Threatening, Disabling)
  Sender: FDA-Public Use
  Company Number: US-ROCHE-2055787

PATIENT
  Age: 62 Year
  Sex: Male
  Weight: 82.1 kg

DRUGS (3)
  1. RADIUM-223 [Suspect]
     Active Substance: RADIUM RA-223 DICHLORIDE
     Indication: HORMONE-REFRACTORY PROSTATE CANCER
     Dosage: DOSE: 55 KILOBECQUERELS PER KILOGRAM (KBQ/KG) ON DAY 1 OF EACH 28-DAY CYCLE FOR UP TO 6 CYCLES.?MOST
     Route: 042
     Dates: start: 20171201
  2. LEUPROLIDE [Concomitant]
     Active Substance: LEUPROLIDE
     Indication: PROSTATE CANCER
     Route: 030
     Dates: start: 20140311
  3. ATEZOLIZUMAB. [Suspect]
     Active Substance: ATEZOLIZUMAB
     Indication: HORMONE-REFRACTORY PROSTATE CANCER
     Dosage: ON DAYS 1 AND 15 OF EACH 28-DAY CYCLE ?MOST RECENT DOSE PRIOR TO AE ONSET: 29/DEC/2017 AT 12.04
     Route: 042
     Dates: start: 20171229

REACTIONS (1)
  - Encephalitis [Recovering/Resolving]

NARRATIVE: CASE EVENT DATE: 20180111
